FAERS Safety Report 5399985-9 (Version None)
Quarter: 2007Q3

REPORT INFORMATION
  Report Type: 
  Country: None (occurrence: None)
  Receive Date: 20070727
  Receipt Date: 20070727
  Transmission Date: 20080115
  Serious: Yes (Hospitalization, Other)
  Sender: FDA-Public Use
  Company Number: None

PATIENT
  Sex: Female
  Weight: 58.9676 kg

DRUGS (3)
  1. PAXIL [Suspect]
     Indication: ANXIETY
     Dosage: NORAMALLY 20MG SOMTIME 10-40MG DAILY PO
     Route: 048
     Dates: start: 19980320, end: 20070527
  2. PAXIL [Suspect]
     Indication: DEPRESSION
     Dosage: NORAMALLY 20MG SOMTIME 10-40MG DAILY PO
     Route: 048
     Dates: start: 19980320, end: 20070527
  3. PAXIL [Suspect]
     Indication: PANIC ATTACK
     Dosage: NORAMALLY 20MG SOMTIME 10-40MG DAILY PO
     Route: 048
     Dates: start: 19980320, end: 20070527

REACTIONS (25)
  - BEDRIDDEN [None]
  - CHILLS [None]
  - DECREASED INTEREST [None]
  - DISTURBANCE IN ATTENTION [None]
  - DRUG DOSE OMISSION [None]
  - DRUG WITHDRAWAL SYNDROME [None]
  - FEAR [None]
  - FEELING ABNORMAL [None]
  - FLANK PAIN [None]
  - FLIGHT OF IDEAS [None]
  - INFLUENZA LIKE ILLNESS [None]
  - IRRITABLE BOWEL SYNDROME [None]
  - MALAISE [None]
  - MARITAL PROBLEM [None]
  - MUSCLE CONTRACTIONS INVOLUNTARY [None]
  - MUSCLE SPASMS [None]
  - PAIN [None]
  - PANIC ATTACK [None]
  - PARANOIA [None]
  - PYREXIA [None]
  - RENAL FUNCTION TEST ABNORMAL [None]
  - ROAD TRAFFIC ACCIDENT [None]
  - SUICIDAL IDEATION [None]
  - THREAT OF REDUNDANCY [None]
  - WEIGHT INCREASED [None]
